FAERS Safety Report 15099676 (Version 7)
Quarter: 2018Q3

REPORT INFORMATION
  Report Type: Report from Study
  Country: None (occurrence: US)
  Receive Date: 20180702
  Receipt Date: 20180906
  Transmission Date: 20181010
  Serious: Yes (Hospitalization)
  Sender: FDA-Public Use
  Company Number: US-ABBVIE-18K-163-2396269-00

PATIENT
  Age: 36 Year
  Sex: Female
  Weight: 106.24 kg

DRUGS (5)
  1. HUMIRA [Suspect]
     Active Substance: ADALIMUMAB
     Route: 058
     Dates: start: 20180704
  2. APRISO [Concomitant]
     Active Substance: MESALAMINE
     Indication: COLITIS ULCERATIVE
  3. HUMIRA [Suspect]
     Active Substance: ADALIMUMAB
     Indication: COLITIS ULCERATIVE
     Dosage: DAY 1
     Route: 058
     Dates: start: 20180606, end: 20180606
  4. IMURAN [Concomitant]
     Active Substance: AZATHIOPRINE
     Indication: COLITIS ULCERATIVE
  5. HUMIRA [Suspect]
     Active Substance: ADALIMUMAB
     Dosage: DAY 15
     Route: 058
     Dates: start: 20180620, end: 20180620

REACTIONS (9)
  - Anaemia [Recovering/Resolving]
  - Anaemia [Recovered/Resolved]
  - Vomiting [Recovered/Resolved]
  - Hypophagia [Unknown]
  - Colitis ulcerative [Recovered/Resolved]
  - Loss of personal independence in daily activities [Recovered/Resolved]
  - Decreased appetite [Recovered/Resolved]
  - Injection site pain [Recovering/Resolving]
  - Nausea [Recovered/Resolved]

NARRATIVE: CASE EVENT DATE: 2018
